FAERS Safety Report 8681603 (Version 3)
Quarter: 2014Q1

REPORT INFORMATION
  Report Type: Spontaneous
  Country: ES (occurrence: ES)
  Receive Date: 20120725
  Receipt Date: 20140212
  Transmission Date: 20141002
  Serious: Yes (Life-Threatening, Other)
  Sender: FDA-Public Use
  Company Number: ES-MSD-2012SP029745

PATIENT
  Age: 62 Year
  Sex: Female
  Weight: 65 kg

DRUGS (1)
  1. BRIDION [Suspect]
     Indication: NEUROMUSCULAR BLOCKADE REVERSAL
     Dosage: UNIQUE DOSE/ 200 MG
     Route: 042
     Dates: start: 20120420, end: 20120420

REACTIONS (3)
  - Acute pulmonary oedema [Recovered/Resolved]
  - Dyspnoea [Recovered/Resolved]
  - Hypoxia [Recovered/Resolved]
